FAERS Safety Report 17856923 (Version 1)
Quarter: 2020Q2

REPORT INFORMATION
  Report Type: Report from Study
  Country: US (occurrence: US)
  Receive Date: 20200603
  Receipt Date: 20200603
  Transmission Date: 20200714
  Serious: Yes (Hospitalization, Other)
  Sender: FDA-Public Use
  Company Number: NVSC2020US152178

PATIENT
  Sex: Female

DRUGS (1)
  1. ENTRESTO [Suspect]
     Active Substance: SACUBITRIL\VALSARTAN
     Indication: CARDIAC FAILURE
     Dosage: 24.26 MG, BID
     Route: 048
     Dates: start: 20200428

REACTIONS (10)
  - Renal pain [Unknown]
  - Musculoskeletal pain [Unknown]
  - Muscular weakness [Unknown]
  - Myalgia [Unknown]
  - Back pain [Unknown]
  - Pain [Unknown]
  - Balance disorder [Unknown]
  - Arterial haemorrhage [Unknown]
  - Procedural pain [Unknown]
  - Mobility decreased [Unknown]
